FAERS Safety Report 5835597-8 (Version None)
Quarter: 2008Q3

REPORT INFORMATION
  Report Type: 
  Country: None (occurrence: None)
  Receive Date: 20080806
  Receipt Date: 20080728
  Transmission Date: 20090109
  Serious: Yes (Other)
  Sender: FDA-Public Use
  Company Number: PHEH2008US06681

PATIENT
  Sex: Female
  Weight: 74.83 kg

DRUGS (3)
  1. RECLAST [Suspect]
     Indication: OSTEOPOROSIS POSTMENOPAUSAL
     Dosage: 5 MG, YEARLY
     Dates: start: 20080722
  2. DIOVAN [Concomitant]
  3. IBUPROFEN TABLETS [Concomitant]

REACTIONS (3)
  - PARAESTHESIA [None]
  - PRURITUS [None]
  - SWOLLEN TONGUE [None]
